FAERS Safety Report 15977882 (Version 1)
Quarter: 2019Q1

REPORT INFORMATION
  Report Type: Spontaneous
  Country: CA (occurrence: CA)
  Receive Date: 20190218
  Receipt Date: 20190218
  Transmission Date: 20190418
  Serious: Yes (Other)
  Sender: FDA-Public Use
  Company Number: CA-TEVA-2019-CA-1013988

PATIENT
  Age: 5 Month
  Sex: Male

DRUGS (8)
  1. DAPSONE. [Suspect]
     Active Substance: DAPSONE
     Route: 061
  2. PREDNISOLONE. [Suspect]
     Active Substance: PREDNISOLONE
     Route: 065
  3. POTASSIUM IODIDE. [Suspect]
     Active Substance: POTASSIUM IODIDE
     Indication: ACUTE FEBRILE NEUTROPHILIC DERMATOSIS
     Dosage: 100 MILLIGRAM DAILY;
     Route: 065
  4. POTASSIUM IODIDE. [Suspect]
     Active Substance: POTASSIUM IODIDE
     Dosage: 150 MILLIGRAM DAILY;
     Route: 065
  5. PREDNISOLONE. [Suspect]
     Active Substance: PREDNISOLONE
     Indication: ACUTE FEBRILE NEUTROPHILIC DERMATOSIS
     Dosage: 2 MG/KG DAILY;
     Route: 065
  6. POTASSIUM IODIDE. [Suspect]
     Active Substance: POTASSIUM IODIDE
     Dosage: 300 MILLIGRAM DAILY;
     Route: 065
  7. PREDNISOLONE. [Suspect]
     Active Substance: PREDNISOLONE
     Indication: ACUTE FEBRILE NEUTROPHILIC DERMATOSIS
     Route: 065
  8. POTASSIUM IODIDE. [Suspect]
     Active Substance: POTASSIUM IODIDE
     Dosage: 250 MILLIGRAM DAILY;
     Route: 065

REACTIONS (3)
  - Acute febrile neutrophilic dermatosis [Recovered/Resolved]
  - Off label use [Recovered/Resolved]
  - Rebound effect [Recovered/Resolved]
